FAERS Safety Report 5908090-1 (Version None)
Quarter: 2008Q4

REPORT INFORMATION
  Report Type: 
  Country: None (occurrence: None)
  Receive Date: 20081003
  Receipt Date: 20080923
  Transmission Date: 20090506
  Serious: Yes (Hospitalization, Other)
  Sender: FDA-Public Use
  Company Number: DE-PFIZER INC-2008079744

PATIENT
  Sex: Female
  Weight: 74.8 kg

DRUGS (5)
  1. CELEBREX [Suspect]
  2. ASPIRIN [Suspect]
     Indication: ANALGESIA
     Route: 048
  3. ASPIRIN [Suspect]
     Indication: CARDIOVASCULAR EVENT PROPHYLAXIS
  4. PLAVIX [Suspect]
  5. DRUG, UNSPECIFIED [Concomitant]

REACTIONS (6)
  - BLOOD PRESSURE INCREASED [None]
  - CARDIAC OPERATION [None]
  - CONTUSION [None]
  - EPISTAXIS [None]
  - HEART RATE INCREASED [None]
  - PALPITATIONS [None]
